FAERS Safety Report 8136444-4 (Version None)
Quarter: 2012Q1

REPORT INFORMATION
  Report Type: 
  Country: None (occurrence: None)
  Receive Date: 20120214
  Receipt Date: 20120203
  Transmission Date: 20120608
  Serious: Yes (Life-Threatening, Other)
  Sender: FDA-Public Use
  Company Number: US-PERRIGO-12US000951

PATIENT
  Age: 46 Year
  Sex: Male

DRUGS (7)
  1. THIOPENTAL SODIUM [Suspect]
     Indication: ANAESTHESIA
     Dosage: UNK
     Route: 065
     Dates: start: 20090101, end: 20090101
  2. MIDAZOLAM HCL [Suspect]
     Indication: ANAESTHESIA
     Dosage: UNK
     Route: 065
     Dates: start: 20090101, end: 20090101
  3. FENTANYL [Suspect]
     Indication: ANAESTHESIA
     Dosage: UNK
     Route: 065
     Dates: start: 20090101, end: 20090101
  4. ATRACURIUM BESYLATE [Suspect]
     Indication: ANAESTHESIA
     Dosage: UNK
     Route: 065
     Dates: start: 20090101, end: 20090101
  5. PROPOFOL [Suspect]
     Indication: ANAESTHESIA
     Dosage: UNK
     Route: 065
     Dates: start: 20090101, end: 20090101
  6. PANCURONIUM BROMIDE [Suspect]
     Indication: ANAESTHESIA
     Dosage: UNK
     Route: 065
     Dates: start: 20090101, end: 20090101
  7. ALBUMIN (HUMAN) [Suspect]
     Indication: PRODUCT USED FOR UNKNOWN INDICATION
     Dosage: UNK
     Route: 065
     Dates: start: 20090101, end: 20090101

REACTIONS (3)
  - ANAPHYLACTIC REACTION [None]
  - BLOOD PRESSURE DECREASED [None]
  - URTICARIA [None]
